FAERS Safety Report 21671831 (Version 1)
Quarter: 2022Q4

REPORT INFORMATION
  Report Type: Report from Study
  Country: US (occurrence: US)
  Receive Date: 20221202
  Receipt Date: 20221202
  Transmission Date: 20230112
  Serious: No
  Sender: FDA-Public Use
  Company Number: US-ABBVIE-4183144

PATIENT
  Sex: Female

DRUGS (15)
  1. SKYRIZI [Suspect]
     Active Substance: RISANKIZUMAB-RZAA
     Indication: Psoriatic arthropathy
     Route: 058
     Dates: start: 20220305
  2. PRAVASTATIN SODIUM 20 MG TABLET [Concomitant]
     Indication: Product used for unknown indication
  3. GABAPENTIN [Concomitant]
     Active Substance: GABAPENTIN
     Indication: Product used for unknown indication
  4. TAMSULOSIN HYDROCHLORIDE [Concomitant]
     Active Substance: TAMSULOSIN HYDROCHLORIDE
     Indication: Product used for unknown indication
  5. MODERNA COVID (12Y UP)VAC(EUA) Covid-19 Vaccine [Concomitant]
     Indication: COVID-19 immunisation
  6. CITALOPRAM HBR 40 MG TABLET [Concomitant]
     Indication: Product used for unknown indication
  7. ZOLPIDEM TARTRATE [Concomitant]
     Active Substance: ZOLPIDEM TARTRATE
     Indication: Product used for unknown indication
  8. FLUAD QUAD 2022-2023 [Concomitant]
     Indication: Product used for unknown indication
  9. IBUPROFEN 200 MG TABLET [Concomitant]
     Indication: Product used for unknown indication
  10. PFIZER COVID-19 VACCINE (EUA) Covid-19 Vaccine [Concomitant]
     Indication: COVID-19 immunisation
  11. LISINOPRIL 20 MG TABLET. [Concomitant]
     Indication: Product used for unknown indication
  12. TRAZODONE HYDROCHLORIDE [Concomitant]
     Active Substance: TRAZODONE HYDROCHLORIDE
     Indication: Product used for unknown indication
  13. FLONASE ALLERGY RELIEF [Concomitant]
     Active Substance: FLUTICASONE PROPIONATE
     Indication: Product used for unknown indication
  14. BELSOMRA [Concomitant]
     Active Substance: SUVOREXANT
     Indication: Product used for unknown indication
  15. E3UPROPION HCL 100 MG TABLET [Concomitant]
     Indication: Product used for unknown indication

REACTIONS (5)
  - Drug ineffective [Unknown]
  - Diarrhoea [Unknown]
  - Arthralgia [Unknown]
  - Joint stiffness [Unknown]
  - Pain in extremity [Unknown]
